FAERS Safety Report 8810636 (Version 1)
Quarter: 2012Q4

REPORT INFORMATION
  Report Type: Spontaneous
  Country: US (occurrence: None)
  Receive Date: 20120924
  Receipt Date: 20120924
  Transmission Date: 20130627
  Serious: No
  Sender: FDA-Public Use
  Company Number: None

PATIENT
  Age: 58 Year
  Sex: Male
  Weight: 86.18 kg

DRUGS (2)
  1. ANDROGEL [Suspect]
     Indication: BLOOD TESTOSTERONE DECREASED
     Dosage: 1-4 pumps day skin
     Dates: start: 20110101, end: 20111203
  2. ANDROGEL 1.62% [Suspect]
     Dosage: 1 pump day skin
     Dates: start: 20111204

REACTIONS (1)
  - Mood swings [None]
